FAERS Safety Report 4753870-1 (Version None)
Quarter: 2005Q3

REPORT INFORMATION
  Report Type: 
  Country: None (occurrence: None)
  Receive Date: 20050826
  Receipt Date: 20050822
  Transmission Date: 20060218
  Serious: Yes (Other)
  Sender: FDA-Public Use
  Company Number: NL-GLAXOSMITHKLINE-B0391743A

PATIENT
  Age: 69 Year
  Sex: Male

DRUGS (7)
  1. LAMOTRIGINE [Suspect]
     Indication: DRUG USE FOR UNKNOWN INDICATION
     Dosage: 25MG SEE DOSAGE TEXT
     Route: 065
     Dates: start: 20050707
  2. SINEMET [Concomitant]
     Route: 065
     Dates: start: 20041201
  3. OXAZEPAM [Concomitant]
     Dosage: 10MG PER DAY
     Route: 065
  4. TRAZOLAN [Concomitant]
     Dosage: 100MG PER DAY
     Route: 065
  5. TEMAZEPAM [Concomitant]
     Dosage: 20MG PER DAY
  6. NEWACE [Concomitant]
     Dosage: 10MG UNKNOWN
     Route: 065
  7. ASCAL CARDIO [Concomitant]
     Dosage: 100MG UNKNOWN
     Route: 065

REACTIONS (3)
  - DIFFICULTY IN WALKING [None]
  - PARKINSONISM [None]
  - TREMOR [None]
